FAERS Safety Report 12494910 (Version 1)
Quarter: 2016Q2

REPORT INFORMATION
  Report Type: Spontaneous
  Country: US (occurrence: US)
  Receive Date: 20160624
  Receipt Date: 20160624
  Transmission Date: 20160815
  Serious: Yes (Hospitalization)
  Sender: FDA-Public Use
  Company Number: US-ROCHE-1780113

PATIENT
  Age: 68 Year
  Sex: Female

DRUGS (1)
  1. XELODA [Suspect]
     Active Substance: CAPECITABINE
     Indication: NEOPLASM MALIGNANT
     Dosage: TAKE 5 TABLETS BY MOUTH 2 TIMES/DAY
     Route: 048
     Dates: start: 20160518, end: 20160531

REACTIONS (11)
  - Diarrhoea [Recovering/Resolving]
  - Oesophageal stenosis [Recovering/Resolving]
  - Oral mucosal blistering [Recovering/Resolving]
  - Pain [Recovering/Resolving]
  - Skin exfoliation [Recovering/Resolving]
  - Cerebrovascular accident [Recovering/Resolving]
  - Escherichia test positive [Recovering/Resolving]
  - Oesophagitis [Recovering/Resolving]
  - Erythema [Recovering/Resolving]
  - Blister [Recovering/Resolving]
  - Feeling abnormal [Recovering/Resolving]

NARRATIVE: CASE EVENT DATE: 201606
